FAERS Safety Report 8908176 (Version 1)
Quarter: 2012Q4

REPORT INFORMATION
  Report Type: 
  Country: US (occurrence: US)
  Receive Date: 20121113
  Receipt Date: 20121113
  Transmission Date: 20130627
  Serious: No
  Sender: FDA-Public Use
  Company Number: US-AMGEN-USASP2012059063

PATIENT
  Age: 85 Year
  Sex: Female
  Weight: 80.73 kg

DRUGS (14)
  1. ARANESP [Suspect]
     Indication: ANAEMIA MACROCYTIC
     Dosage: UNK
  2. ALLOPURINOL [Concomitant]
     Dosage: 100 mg, qd
     Route: 048
  3. AMLODIPINE BESYLATE [Concomitant]
     Dosage: 5 mg, qd
     Route: 048
  4. DIPHEN [Concomitant]
     Dosage: UNK
     Route: 048
  5. EXJADE [Concomitant]
     Dosage: 250 mg, tid
     Route: 048
  6. FOLIC ACID [Concomitant]
     Dosage: 1 mg, qd
     Route: 048
  7. HYDROCODONE BITARTRATE AND ACETAMINOPHEN [Concomitant]
     Indication: PAIN
     Dosage: 5mg - 500mg, Take 1-2 tablets Q4-6Hrs PRN
     Route: 048
  8. IMODIUM A-D [Concomitant]
     Dosage: UNK
     Route: 048
  9. LASIX                              /00032601/ [Concomitant]
     Dosage: 40 mg, qd
     Route: 048
  10. LOMOTIL [Concomitant]
     Dosage: 2.5- .025 mg, qid PRN
     Route: 048
  11. METOPROLOL TARTRATE [Concomitant]
     Dosage: 50 mg, bid
     Route: 048
  12. OMEPRAZOLE [Concomitant]
     Dosage: 20 mg, qd
     Route: 048
  13. TYLENOL                            /00020001/ [Concomitant]
     Dosage: 500 mg, UNK take 2 PO as directed
     Route: 048
  14. B6 [Concomitant]
     Dosage: UNK

REACTIONS (8)
  - Myelodysplastic syndrome [Not Recovered/Not Resolved]
  - Drug intolerance [Unknown]
  - Spinal column stenosis [Not Recovered/Not Resolved]
  - Musculoskeletal pain [Not Recovered/Not Resolved]
  - Fatigue [Not Recovered/Not Resolved]
  - Diarrhoea [Not Recovered/Not Resolved]
  - Oedema peripheral [Not Recovered/Not Resolved]
  - Dyspnoea [Not Recovered/Not Resolved]
